FAERS Safety Report 15103373 (Version 2)
Quarter: 2018Q3

REPORT INFORMATION
  Report Type: Spontaneous
  Country: US (occurrence: US)
  Receive Date: 20180703
  Receipt Date: 20180720
  Transmission Date: 20181010
  Serious: Yes (Other)
  Sender: FDA-Public Use
  Company Number: US-PFIZER INC-2018264157

PATIENT
  Age: 40 Year
  Sex: Male
  Weight: 102 kg

DRUGS (7)
  1. CARISOPRODOL. [Concomitant]
     Active Substance: CARISOPRODOL
     Indication: MUSCLE SPASMS
     Dosage: 350 MG (1 TABLET) 3 TIMES A DAY
     Route: 048
  2. XANAX [Suspect]
     Active Substance: ALPRAZOLAM
     Indication: PANIC DISORDER
     Dosage: 1 MG, TWICE A DAY
     Route: 048
     Dates: start: 201412
  3. IRBESARTAN. [Concomitant]
     Active Substance: IRBESARTAN
     Indication: HYPERTENSION
     Dosage: 150 MG (1 TABLET), ONCE A DAY
     Route: 048
     Dates: start: 20171009
  4. NARCAN [Concomitant]
     Active Substance: NALOXONE HYDROCHLORIDE
     Dosage: 4 MG PER 0.1ML , AS NEEDED
  5. XANAX [Suspect]
     Active Substance: ALPRAZOLAM
     Dosage: 1 MG, 4X/DAY (TOTAL OF 4 TABLETS DAILY)
     Route: 048
     Dates: end: 20180705
  6. OXYCODONE [Concomitant]
     Active Substance: OXYCODONE
     Indication: POST-TRAUMATIC PAIN
     Dosage: 15 MG (1 TABLET), 4 TIMES A DAY
     Route: 048
     Dates: start: 2013
  7. GABAPENTIN. [Concomitant]
     Active Substance: GABAPENTIN
     Indication: NEURALGIA
     Dosage: 800 MG (1 TABLET), 3 TIMES A DAY
     Route: 048

REACTIONS (2)
  - Attention deficit/hyperactivity disorder [Recovering/Resolving]
  - Seizure [Recovered/Resolved]

NARRATIVE: CASE EVENT DATE: 20160720
